FAERS Safety Report 17604079 (Version 1)
Quarter: 2020Q1

REPORT INFORMATION
  Report Type: Report from Study
  Country: None (occurrence: AU)
  Receive Date: 20200331
  Receipt Date: 20200331
  Transmission Date: 20200409
  Serious: Yes (Hospitalization)
  Sender: FDA-Public Use
  Company Number: AU-ABBVIE-19K-008-2951412-00

PATIENT
  Sex: Male

DRUGS (3)
  1. HUMIRA [Suspect]
     Active Substance: ADALIMUMAB
     Route: 058
     Dates: start: 2020
  2. PREDNISONE. [Concomitant]
     Active Substance: PREDNISONE
     Indication: COLITIS ULCERATIVE
     Dates: start: 2019
  3. HUMIRA [Suspect]
     Active Substance: ADALIMUMAB
     Indication: COLITIS ULCERATIVE
     Route: 058
     Dates: start: 20190918, end: 2020

REACTIONS (8)
  - Tongue ulceration [Not Recovered/Not Resolved]
  - Haemorrhage [Unknown]
  - Drug level decreased [Unknown]
  - Influenza [Unknown]
  - Malaise [Unknown]
  - Colitis ulcerative [Recovered/Resolved]
  - Colitis ulcerative [Recovering/Resolving]
  - Overweight [Unknown]

NARRATIVE: CASE EVENT DATE: 2019
